FAERS Safety Report 24025115 (Version 2)
Quarter: 2024Q3

REPORT INFORMATION
  Report Type: Report from Study
  Country: RO (occurrence: RO)
  Receive Date: 20240628
  Receipt Date: 20240710
  Transmission Date: 20241017
  Serious: No
  Sender: ROCHE
  Company Number: RO-ROCHE-3457940

PATIENT
  Age: 63 Year
  Sex: Female
  Weight: 79.0 kg

DRUGS (1)
  1. PHESGO [Suspect]
     Active Substance: HYALURONIDASE-ZZXF\PERTUZUMAB\TRASTUZUMAB
     Indication: Product used for unknown indication
     Route: 030

REACTIONS (7)
  - Nervous system disorder [Unknown]
  - Panic attack [Unknown]
  - Weight decreased [Unknown]
  - Confusional state [Unknown]
  - Cancer surgery [Unknown]
  - Memory impairment [Unknown]
  - Off label use [Unknown]
